FAERS Safety Report 11102008 (Version 2)
Quarter: 2015Q2

REPORT INFORMATION
  Report Type: Report from Study
  Country: US (occurrence: US)
  Receive Date: 20150510
  Receipt Date: 20150629
  Transmission Date: 20150821
  Serious: Yes (Hospitalization)
  Sender: FDA-Public Use
  Company Number: US-AMGEN-USASL2015044365

PATIENT
  Age: 51 Year
  Sex: Female

DRUGS (1)
  1. ENBREL [Suspect]
     Active Substance: ETANERCEPT
     Indication: RHEUMATOID ARTHRITIS
     Dosage: 50 MG, QWK
     Route: 065
     Dates: start: 20141215

REACTIONS (12)
  - Pain [Not Recovered/Not Resolved]
  - Hepatic enzyme increased [Recovered/Resolved]
  - Erythema [Recovered/Resolved]
  - Cellulitis [Recovered/Resolved]
  - Peripheral swelling [Recovered/Resolved]
  - Gait disturbance [Recovered/Resolved]
  - Arthralgia [Not Recovered/Not Resolved]
  - Joint swelling [Not Recovered/Not Resolved]
  - Injection site pain [Not Recovered/Not Resolved]
  - Blood bilirubin increased [Recovered/Resolved]
  - Infection [Recovered/Resolved]
  - Pain in extremity [Not Recovered/Not Resolved]

NARRATIVE: CASE EVENT DATE: 20141215
